FAERS Safety Report 7364049-1 (Version None)
Quarter: 2011Q1

REPORT INFORMATION
  Report Type: 
  Country: None (occurrence: None)
  Receive Date: 20110321
  Receipt Date: 20110308
  Transmission Date: 20110831
  Serious: Yes (Other)
  Sender: FDA-Public Use
  Company Number: PHHY2011CA20128

PATIENT

DRUGS (2)
  1. ALISKIREN [Suspect]
  2. ACE INHIBITORS AND DIURETICS [Suspect]
     Dosage: UNK

REACTIONS (2)
  - URINE ALBUMIN/CREATININE RATIO INCREASED [None]
  - DEPRESSION [None]
